FAERS Safety Report 20565267 (Version 1)
Quarter: 2022Q1

REPORT INFORMATION
  Report Type: Spontaneous
  Country: US (occurrence: None)
  Receive Date: 20220307
  Receipt Date: 20220307
  Transmission Date: 20220423
  Serious: Yes (Other)
  Sender: FDA-Public Use
  Company Number: None

PATIENT
  Age: 64 Year
  Sex: Female

DRUGS (1)
  1. CAPECITABINE [Suspect]
     Active Substance: CAPECITABINE
     Dosage: FREQUENCY : DAILY;?
     Route: 048
     Dates: start: 202112

REACTIONS (8)
  - Epistaxis [None]
  - Platelet count decreased [None]
  - Therapy cessation [None]
  - Palmar-plantar erythrodysaesthesia syndrome [None]
  - Fatigue [None]
  - Diarrhoea [None]
  - Hypersensitivity [None]
  - Feeling cold [None]

NARRATIVE: CASE EVENT DATE: 20220307
